FAERS Safety Report 6376355-8 (Version None)
Quarter: 2009Q3

REPORT INFORMATION
  Report Type: 
  Country: None (occurrence: None)
  Receive Date: 20090922
  Receipt Date: 20090922
  Transmission Date: 20100115
  Serious: No
  Sender: FDA-Public Use
  Company Number: None

PATIENT
  Age: 71 Year
  Sex: Female
  Weight: 74.8435 kg

DRUGS (1)
  1. PLAVIX [Suspect]
     Indication: ANGIOPLASTY
     Dosage: 1 DAILY
     Dates: start: 20090903, end: 20090908

REACTIONS (5)
  - ERYTHEMA [None]
  - FEELING HOT [None]
  - IMPAIRED WORK ABILITY [None]
  - PAIN [None]
  - PRURITUS [None]
